FAERS Safety Report 7353253-4 (Version None)
Quarter: 2011Q1

REPORT INFORMATION
  Report Type: 
  Country: None (occurrence: None)
  Receive Date: 20110310
  Receipt Date: 20110310
  Transmission Date: 20110831
  Serious: No
  Sender: FDA-Public Use
  Company Number: None

PATIENT
  Age: 47 Year
  Sex: Male

DRUGS (3)
  1. COMBIVIR [Suspect]
     Dates: start: 20070401, end: 20080105
  2. NORVIR [Suspect]
     Dates: start: 20070401, end: 20080105
  3. REYATAZ [Suspect]
     Dates: start: 20070401, end: 20080105

REACTIONS (6)
  - LIVER INJURY [None]
  - BLOOD ALKALINE PHOSPHATASE INCREASED [None]
  - ASPARTATE AMINOTRANSFERASE INCREASED [None]
  - ALANINE AMINOTRANSFERASE INCREASED [None]
  - LIVER DISORDER [None]
  - BLOOD BILIRUBIN INCREASED [None]
